FAERS Safety Report 4621063-4 (Version None)
Quarter: 2005Q1

REPORT INFORMATION
  Report Type: 
  Country: None (occurrence: None)
  Receive Date: 20050328
  Receipt Date: 20050118
  Transmission Date: 20050727
  Serious: Yes (Life-Threatening, Disabling)
  Sender: FDA-Public Use
  Company Number: US-MERCK-0501USA02829

PATIENT
  Age: 52 Year
  Sex: Female
  Weight: 64 kg

DRUGS (5)
  1. VIOXX [Suspect]
     Indication: OSTEOARTHRITIS
     Route: 048
     Dates: start: 19990701, end: 19991201
  2. VIOXX [Suspect]
     Route: 048
     Dates: start: 20031222
  3. VIOXX [Suspect]
     Route: 048
     Dates: start: 20040216
  4. ZELNORM [Concomitant]
     Route: 065
  5. NEXIUM [Concomitant]
     Route: 065

REACTIONS (4)
  - HEMIPARESIS [None]
  - PAIN [None]
  - SENSORY LOSS [None]
  - TRANSIENT ISCHAEMIC ATTACK [None]
